FAERS Safety Report 5271639-9 (Version None)
Quarter: 2007Q1

REPORT INFORMATION
  Report Type: 
  Country: None (occurrence: None)
  Receive Date: 20070316
  Receipt Date: 20070228
  Transmission Date: 20070707
  Serious: Yes (Death, Hospitalization, Other)
  Sender: FDA-Public Use
  Company Number: 2007BI002270

PATIENT
  Age: 83 Year
  Sex: Male
  Weight: 79.8331 kg

DRUGS (7)
  1. ZEVALIN [Suspect]
     Indication: NON-HODGKIN'S LYMPHOMA
     Dosage: 5.7 MCI; 1X; IV
     Route: 042
     Dates: start: 20050816, end: 20050816
  2. ZEVALIN [Suspect]
     Indication: NON-HODGKIN'S LYMPHOMA
     Dosage: 31.6 MCI; 1X; IV
     Route: 042
     Dates: start: 20050823, end: 20050823
  3. RITUXIMAB [Concomitant]
  4. RITUXIMAB [Concomitant]
  5. COUMADIN [Concomitant]
  6. LIPITOR [Concomitant]
  7. PROTONIX [Concomitant]

REACTIONS (5)
  - CHROMOSOME ABNORMALITY [None]
  - MEAN CELL VOLUME INCREASED [None]
  - MYELODYSPLASTIC SYNDROME [None]
  - NAUSEA [None]
  - SEPTIC SHOCK [None]
